FAERS Safety Report 23737826 (Version 1)
Quarter: 2024Q2

REPORT INFORMATION
  Report Type: Spontaneous
  Country: ES (occurrence: ES)
  Receive Date: 20240412
  Receipt Date: 20240412
  Transmission Date: 20240716
  Serious: Yes (Hospitalization, Other)
  Sender: FDA-Public Use
  Company Number: None

PATIENT
  Age: 80 Year
  Sex: Male

DRUGS (12)
  1. RITUXIMAB [Suspect]
     Active Substance: RITUXIMAB
     Indication: Hodgkin^s disease
     Dosage: 682.5 MG, CYCLIC
     Route: 042
     Dates: start: 20231017, end: 20231227
  2. RITUXIMAB [Suspect]
     Active Substance: RITUXIMAB
     Dosage: 688 MG, CYCLIC
     Route: 042
     Dates: start: 20230713, end: 20230921
  3. RITUXIMAB [Suspect]
     Active Substance: RITUXIMAB
     Dosage: 645 MG, CYCLIC
     Dates: start: 20230615, end: 20230615
  4. DOXORUBICIN HYDROCHLORIDE [Suspect]
     Active Substance: DOXORUBICIN HYDROCHLORIDE
     Indication: Hodgkin^s disease
     Dosage: 91 MG, CYCLIC
     Route: 042
     Dates: start: 20231017, end: 20231227
  5. DOXORUBICIN HYDROCHLORIDE [Suspect]
     Active Substance: DOXORUBICIN HYDROCHLORIDE
     Dosage: 43 MG, CYCLIC
     Route: 042
     Dates: start: 20230713, end: 20230921
  6. DOXORUBICIN HYDROCHLORIDE [Suspect]
     Active Substance: DOXORUBICIN HYDROCHLORIDE
     Dosage: 86 MG, CYCLIC
     Route: 042
     Dates: start: 20230615, end: 20230615
  7. VINCRISTINE [Suspect]
     Active Substance: VINCRISTINE
     Indication: Diffuse large B-cell lymphoma stage II
     Dosage: 2 MG, CYCLIC
     Route: 042
     Dates: start: 20231017, end: 20231227
  8. VINCRISTINE [Suspect]
     Active Substance: VINCRISTINE
     Dosage: 1 MG, CYCLIC
     Route: 042
     Dates: start: 20230713, end: 20230921
  9. VINCRISTINE [Suspect]
     Active Substance: VINCRISTINE
     Dosage: 2 MG, CYCLIC
     Route: 017
     Dates: start: 20230615, end: 20230615
  10. CYCLOPHOSPHAMIDE [Suspect]
     Active Substance: CYCLOPHOSPHAMIDE
     Indication: Burkitt^s lymphoma stage II
     Dosage: 820 MG, CYCLIC
     Route: 042
     Dates: start: 20230713, end: 20230921
  11. CYCLOPHOSPHAMIDE [Suspect]
     Active Substance: CYCLOPHOSPHAMIDE
     Dosage: 1300 MG, CYCLIC
     Route: 042
     Dates: start: 20230615, end: 20230615
  12. CYCLOPHOSPHAMIDE [Suspect]
     Active Substance: CYCLOPHOSPHAMIDE
     Dosage: 1600 MG, CYCLIC
     Route: 042
     Dates: start: 20231012, end: 20231227

REACTIONS (3)
  - Febrile neutropenia [Recovered/Resolved]
  - Diarrhoea [Recovered/Resolved]
  - Neutropenia [Unknown]

NARRATIVE: CASE EVENT DATE: 20240217
